FAERS Safety Report 7784857-2 (Version None)
Quarter: 2011Q3

REPORT INFORMATION
  Report Type: 
  Country: None (occurrence: None)
  Receive Date: 20110928
  Receipt Date: 20110920
  Transmission Date: 20111222
  Serious: Yes (Other)
  Sender: FDA-Public Use
  Company Number: US-AMGEN-USASP2011048412

PATIENT
  Age: 63 Year
  Sex: Male

DRUGS (1)
  1. ENBREL [Suspect]
     Indication: RHEUMATOID ARTHRITIS
     Dosage: 25 MG, 2 TIMES/WK
     Dates: start: 20110808, end: 20110919

REACTIONS (7)
  - PAIN [None]
  - ARTHRALGIA [None]
  - BALANCE DISORDER [None]
  - ASTHENIA [None]
  - MASS [None]
  - CONFUSIONAL STATE [None]
  - GINGIVAL DISORDER [None]
